FAERS Safety Report 7378237-1 (Version None)
Quarter: 2011Q1

REPORT INFORMATION
  Report Type: 
  Country: None (occurrence: None)
  Receive Date: 20110328
  Receipt Date: 20110317
  Transmission Date: 20110831
  Serious: Yes (Hospitalization, Other)
  Sender: FDA-Public Use
  Company Number: B0694211A

PATIENT
  Sex: Male

DRUGS (6)
  1. CRAVIT [Concomitant]
     Dates: start: 20101018
  2. TEGRETOL [Concomitant]
     Dosage: 300MG PER DAY
     Route: 048
     Dates: start: 20100921, end: 20101018
  3. TEGRETOL [Concomitant]
     Indication: NEURALGIA
     Dosage: 200MG PER DAY
     Route: 048
     Dates: start: 20100824, end: 20100920
  4. GASMOTIN [Concomitant]
     Indication: ABDOMINAL PAIN UPPER
     Dosage: 5MG PER DAY
     Route: 048
     Dates: start: 20100824, end: 20101018
  5. ZYLORIC [Suspect]
     Indication: BLOOD URIC ACID INCREASED
     Dosage: 100MG PER DAY
     Route: 048
     Dates: start: 20100921, end: 20101018
  6. TAGAMET [Concomitant]
     Indication: PRODUCT USED FOR UNKNOWN INDICATION
     Route: 065

REACTIONS (3)
  - DRUG RASH WITH EOSINOPHILIA AND SYSTEMIC SYMPTOMS [None]
  - PNEUMONIA [None]
  - DRUG ERUPTION [None]
